FAERS Safety Report 8390018-9 (Version None)
Quarter: 2012Q2

REPORT INFORMATION
  Report Type: 
  Country: None (occurrence: None)
  Receive Date: 20120529
  Receipt Date: 20120522
  Transmission Date: 20120825
  Serious: No
  Sender: FDA-Public Use
  Company Number: US-PFIZER INC-2012124193

PATIENT
  Sex: Female
  Weight: 63.5 kg

DRUGS (2)
  1. PROMETRIUM [Concomitant]
     Dosage: UNK
  2. PREMARIN [Suspect]
     Indication: HORMONE REPLACEMENT THERAPY
     Dosage: 0.625 MG, 1X/DAY
     Route: 048
     Dates: start: 19890101

REACTIONS (4)
  - IRRITABILITY [None]
  - NERVOUSNESS [None]
  - TENSION [None]
  - FEELING ABNORMAL [None]
